FAERS Safety Report 8762753 (Version 2)
Quarter: 2013Q1

REPORT INFORMATION
  Report Type: Spontaneous
  Country: BR (occurrence: BR)
  Receive Date: 20120828
  Receipt Date: 20130320
  Transmission Date: 20140127
  Serious: Yes (Other)
  Sender: FDA-Public Use
  Company Number: BR-PFIZER INC-2012208270

PATIENT
  Age: 46 Year
  Sex: Female

DRUGS (4)
  1. LYRICA [Suspect]
     Indication: NEURALGIA
     Dosage: 75 MG (ONE CAPSULE), 2X/DAY
     Route: 048
     Dates: start: 201104, end: 201108
  2. LYRICA [Suspect]
     Indication: TRIGEMINAL NEURALGIA
     Dosage: 75 MG (ONE CAPSULE), 2X/DAY
  3. TRILEPTAL [Suspect]
     Indication: TRIGEMINAL NEURALGIA
     Dosage: UNK
  4. TORAGESIC [Concomitant]
     Indication: NEURALGIA
     Dosage: 10 MG, 1X/DAY
     Route: 060

REACTIONS (6)
  - Trigeminal nerve disorder [Unknown]
  - Weight increased [Unknown]
  - Increased appetite [Unknown]
  - Headache [Unknown]
  - Eye pain [Unknown]
  - Gastric disorder [Unknown]
